FAERS Safety Report 18539892 (Version 1)
Quarter: 2020Q4

REPORT INFORMATION
  Report Type: Spontaneous
  Country: US (occurrence: US)
  Receive Date: 20201124
  Receipt Date: 20201124
  Transmission Date: 20210114
  Serious: No
  Sender: FDA-Public Use
  Company Number: US-LUPIN PHARMACEUTICALS INC.-2020-06232

PATIENT
  Sex: Male

DRUGS (2)
  1. BUDESONIDE INHALATION SUSPENSION, 0.5 MG/2 ML [Suspect]
     Active Substance: BUDESONIDE
     Dosage: UNK (LAST REFILL)
  2. BUDESONIDE INHALATION SUSPENSION, 0.5 MG/2 ML [Suspect]
     Active Substance: BUDESONIDE
     Indication: PRODUCT USED FOR UNKNOWN INDICATION
     Dosage: UNK (SEVERAL YEARS)

REACTIONS (4)
  - Poor quality product administered [Unknown]
  - Product physical consistency issue [Unknown]
  - No adverse event [Unknown]
  - Product quality issue [Unknown]
